FAERS Safety Report 13629188 (Version 1)
Quarter: 2017Q2

REPORT INFORMATION
  Report Type: Spontaneous
  Country: AT (occurrence: AT)
  Receive Date: 20170608
  Receipt Date: 20170608
  Transmission Date: 20170830
  Serious: Yes (Other)
  Sender: FDA-Public Use
  Company Number: AT-SA-2017SA101061

PATIENT
  Age: 45 Year
  Sex: Female
  Weight: 70 kg

DRUGS (1)
  1. AUBAGIO [Suspect]
     Active Substance: TERIFLUNOMIDE
     Indication: MULTIPLE SCLEROSIS
     Route: 048
     Dates: start: 20150201, end: 20170502

REACTIONS (2)
  - Head discomfort [Recovered/Resolved]
  - Hypertensive crisis [Recovered/Resolved]

NARRATIVE: CASE EVENT DATE: 201704
